FAERS Safety Report 7929047-5 (Version None)
Quarter: 2011Q4

REPORT INFORMATION
  Report Type: 
  Country: None (occurrence: None)
  Receive Date: 20111118
  Receipt Date: 20111111
  Transmission Date: 20120403
  Serious: Yes (Other)
  Sender: FDA-Public Use
  Company Number: US-ASTRAZENECA-2011SE68683

PATIENT
  Sex: Female

DRUGS (4)
  1. NEXIUM [Suspect]
     Indication: MELAENA
     Route: 048
  2. NEXIUM [Suspect]
     Indication: DIARRHOEA
     Route: 048
  3. NEXIUM [Suspect]
     Indication: GASTRIC DISORDER
     Route: 048
  4. NEXIUM [Suspect]
     Indication: EATING DISORDER
     Route: 048

REACTIONS (7)
  - DRUG DOSE OMISSION [None]
  - CONVULSION [None]
  - ABDOMINAL DISCOMFORT [None]
  - DIARRHOEA [None]
  - HAEMATOCHEZIA [None]
  - EATING DISORDER [None]
  - MELAENA [None]
